FAERS Safety Report 23698383 (Version 2)
Quarter: 2024Q2

REPORT INFORMATION
  Report Type: Other
  Country: US (occurrence: None)
  Receive Date: 20240402
  Receipt Date: 20240406
  Transmission Date: 20240716
  Serious: No
  Sender: FDA-Public Use
  Company Number: US-ROCHE-3531896

PATIENT
  Age: 54 Year
  Sex: Male
  Weight: 113.5 kg

DRUGS (5)
  1. OCREVUS [Suspect]
     Active Substance: OCRELIZUMAB
     Indication: Multiple sclerosis
     Dosage: INFUSE 300 MG DAY 1 AND DAY 15 THEN 600 MG EVERY 6  MONTHS.?DATE OF TREATMENT: 10/JUN/2021,  28/JUN/
     Route: 042
     Dates: start: 202105, end: 20231221
  2. OCREVUS [Suspect]
     Active Substance: OCRELIZUMAB
     Indication: Relapsing multiple sclerosis
     Route: 042
     Dates: end: 20231220
  3. XANAX [Concomitant]
     Active Substance: ALPRAZOLAM
     Indication: Anxiety
     Route: 048
  4. PANTOPRAZOLE [Concomitant]
     Active Substance: PANTOPRAZOLE
     Route: 048
  5. KESIMPTA [Concomitant]
     Active Substance: OFATUMUMAB

REACTIONS (9)
  - Multiple sclerosis [Unknown]
  - Helicobacter infection [Not Recovered/Not Resolved]
  - Asthenia [Not Recovered/Not Resolved]
  - Drug ineffective [Unknown]
  - Aspiration [Not Recovered/Not Resolved]
  - Sunburn [Unknown]
  - Limb discomfort [Not Recovered/Not Resolved]
  - Parosmia [Unknown]
  - Gastrointestinal disorder [Recovered/Resolved]

NARRATIVE: CASE EVENT DATE: 20210501
